FAERS Safety Report 9251206 (Version 1)
Quarter: 2013Q2

REPORT INFORMATION
  Report Type: Spontaneous
  Country: US (occurrence: US)
  Receive Date: 20130424
  Receipt Date: 20130424
  Transmission Date: 20140414
  Serious: Yes (Other)
  Sender: FDA-Public Use
  Company Number: US-PFIZER INC-2013126345

PATIENT
  Age: 60 Year
  Sex: Male
  Weight: 81.63 kg

DRUGS (1)
  1. LYRICA [Suspect]
     Indication: PAIN
     Dosage: 600 MG, 1X/DAY
     Dates: start: 2008

REACTIONS (6)
  - Drug dependence [Unknown]
  - Drug interaction [Unknown]
  - Loss of consciousness [Unknown]
  - Apparent death [Unknown]
  - Malaise [Unknown]
  - Tobacco user [Unknown]
